FAERS Safety Report 6294006-8 (Version None)
Quarter: 2009Q3

REPORT INFORMATION
  Report Type: 
  Country: None (occurrence: None)
  Receive Date: 20090803
  Receipt Date: 20080716
  Transmission Date: 20100115
  Serious: No
  Sender: FDA-Public Use
  Company Number: A0738137A

PATIENT
  Age: 77 Year
  Sex: Female

DRUGS (1)
  1. NICORETTE [Suspect]

REACTIONS (1)
  - DRUG INEFFECTIVE [None]
